FAERS Safety Report 23187603 (Version 1)
Quarter: 2023Q4

REPORT INFORMATION
  Report Type: Spontaneous
  Country: US (occurrence: US)
  Receive Date: 20231115
  Receipt Date: 20231115
  Transmission Date: 20240109
  Serious: No
  Sender: FDA-Public Use
  Company Number: US-AMGEN-USASP2023201377

PATIENT
  Age: 10 Year
  Sex: Female

DRUGS (2)
  1. RITUXIMAB [Suspect]
     Active Substance: RITUXIMAB
     Indication: Chronic inflammatory demyelinating polyradiculoneuropathy
     Dosage: UNK UNK, QMO
     Route: 065
  2. Immunoglobulin [Concomitant]
     Dosage: UNK
     Route: 042

REACTIONS (1)
  - Off label use [Unknown]
